FAERS Safety Report 10553640 (Version 1)
Quarter: 2014Q4

REPORT INFORMATION
  Report Type: Spontaneous
  Country: MX (occurrence: None)
  Receive Date: 20141028
  Receipt Date: 20141028
  Transmission Date: 20150529
  Serious: No
  Sender: FDA-Public Use
  Company Number: A1078488A

PATIENT
  Age: 92 Year
  Sex: Female

DRUGS (6)
  1. AROPAX [Suspect]
     Active Substance: PAROXETINE HYDROCHLORIDE
     Indication: DEPRESSION
     Dosage: 1/4 TABLET AT NIGHT?
     Route: 048
     Dates: start: 201106, end: 201408
  2. ZYPREXA (OLANZAPINE) UNKNOWN [Concomitant]
  3. ANARA (SODIUM PICOSULFATE) UNKNOWN [Concomitant]
  4. EXELON [Suspect]
     Active Substance: RIVASTIGMINE TARTRATE
     Indication: DEMENTIA ALZHEIMER^S TYPE
     Dates: start: 2008
  5. EXELON [Suspect]
     Active Substance: RIVASTIGMINE TARTRATE
     Indication: SENILE DEMENTIA
     Dates: start: 2008
  6. SENNOSIDES (SENNOSIDES) (UNKNOWN) [Concomitant]

REACTIONS (9)
  - Brain oedema [None]
  - Petit mal epilepsy [None]
  - Epilepsy [None]
  - Insomnia [None]
  - Logorrhoea [None]
  - Ill-defined disorder [None]
  - Crying [None]
  - Extra dose administered [None]
  - Drug administration error [None]

NARRATIVE: CASE EVENT DATE: 201106
